FAERS Safety Report 8056361 (Version 3)
Quarter: 2014Q3

REPORT INFORMATION
  Report Type: Spontaneous
  Country: US (occurrence: US)
  Receive Date: 20110727
  Receipt Date: 20140708
  Transmission Date: 20150326
  Serious: Yes (Other)
  Sender: FDA-Public Use
  Company Number: US-SANOFI-AVENTIS-2011SA034291

PATIENT
  Age: 68 Year
  Sex: Female

DRUGS (12)
  1. FOLIC ACID. [Concomitant]
     Active Substance: FOLIC ACID
  2. MULTAQ [Suspect]
     Active Substance: DRONEDARONE
     Indication: ATRIAL FIBRILLATION
     Route: 048
     Dates: start: 201005
  3. TONICS [Concomitant]
     Active Substance: UNSPECIFIED INGREDIENT
  4. LISINOPRIL. [Concomitant]
     Active Substance: LISINOPRIL
  5. ASPIRIN. [Concomitant]
     Active Substance: ASPIRIN
  6. COLACE [Concomitant]
     Active Substance: DOCUSATE SODIUM
  7. CALCIUM [Concomitant]
     Active Substance: CALCIUM
  8. ZINC [Concomitant]
     Active Substance: ZINC\ZINC CHLORIDE
  9. CHONDROITIN W/GLUCOSAMINE [Concomitant]
  10. WARFARIN [Concomitant]
     Active Substance: WARFARIN
  11. VITAMINS [Concomitant]
     Active Substance: VITAMINS
  12. ATENOLOL. [Concomitant]
     Active Substance: ATENOLOL

REACTIONS (19)
  - Bowel movement irregularity [Not Recovered/Not Resolved]
  - Haemoglobin decreased [Unknown]
  - Headache [Not Recovered/Not Resolved]
  - Back pain [Not Recovered/Not Resolved]
  - Atrial flutter [Unknown]
  - Skin exfoliation [Not Recovered/Not Resolved]
  - Dizziness [Unknown]
  - Dyspnoea [Not Recovered/Not Resolved]
  - Precancerous skin lesion [Not Recovered/Not Resolved]
  - Eczema [Not Recovered/Not Resolved]
  - Dermatitis contact [Not Recovered/Not Resolved]
  - Bradycardia [Not Recovered/Not Resolved]
  - Erythema [Not Recovered/Not Resolved]
  - Melanocytic naevus [Not Recovered/Not Resolved]
  - Atrial fibrillation [Unknown]
  - Swelling face [Not Recovered/Not Resolved]
  - Acne [Not Recovered/Not Resolved]
  - Rash [Not Recovered/Not Resolved]
  - Hyperhidrosis [Unknown]

NARRATIVE: CASE EVENT DATE: 201005
